FAERS Safety Report 5259925-X (Version None)
Quarter: 2007Q1

REPORT INFORMATION
  Report Type: 
  Country: None (occurrence: None)
  Receive Date: 20070309
  Receipt Date: 20070307
  Transmission Date: 20070707
  Serious: Yes (Other)
  Sender: FDA-Public Use
  Company Number: US-GLAXOSMITHKLINE-A0626061A

PATIENT
  Age: 34 Year
  Sex: Female

DRUGS (4)
  1. LEXIVA [Suspect]
     Indication: ACQUIRED IMMUNODEFICIENCY SYNDROME
     Dosage: 2800MG PER DAY
     Route: 048
  2. TRUVADA [Concomitant]
     Indication: ACQUIRED IMMUNODEFICIENCY SYNDROME
     Dosage: 1TAB PER DAY
     Route: 048
  3. BACTRIM [Concomitant]
  4. PROTONIX [Concomitant]

REACTIONS (1)
  - ABORTION SPONTANEOUS [None]
